FAERS Safety Report 6831851-1 (Version None)
Quarter: 2010Q3

REPORT INFORMATION
  Report Type: 
  Country: None (occurrence: None)
  Receive Date: 20100712
  Receipt Date: 20100630
  Transmission Date: 20110219
  Serious: Yes (Other)
  Sender: FDA-Public Use
  Company Number: IL-PFIZER INC-2010082021

PATIENT
  Age: 50 Year
  Sex: Female

DRUGS (2)
  1. CHAMPIX [Suspect]
     Dosage: 1 MG, UNK
     Route: 048
     Dates: start: 20100601
  2. ASPIRINE [Concomitant]
     Dosage: 100 MG, UNK

REACTIONS (4)
  - CONFUSIONAL STATE [None]
  - DISTURBANCE IN ATTENTION [None]
  - HYPERVIGILANCE [None]
  - LOGORRHOEA [None]
